FAERS Safety Report 13991095 (Version 3)
Quarter: 2019Q2

REPORT INFORMATION
  Report Type: Spontaneous
  Country: US (occurrence: US)
  Receive Date: 20170920
  Receipt Date: 20190613
  Transmission Date: 20190711
  Serious: Yes (Other)
  Sender: FDA-Public Use
  Company Number: US-JNJFOC-20170910405

PATIENT
  Age: 55 Year
  Sex: Female
  Weight: 58.97 kg

DRUGS (4)
  1. DURAGESIC [Suspect]
     Active Substance: FENTANYL
     Indication: PRODUCT USED FOR UNKNOWN INDICATION
     Route: 062
     Dates: start: 2019
  2. DURAGESIC [Suspect]
     Active Substance: FENTANYL
     Indication: PRODUCT USED FOR UNKNOWN INDICATION
     Route: 062
  3. DURAGESIC [Suspect]
     Active Substance: FENTANYL
     Indication: PRODUCT USED FOR UNKNOWN INDICATION
     Route: 062
  4. FENTANYL. [Suspect]
     Active Substance: FENTANYL
     Indication: PRODUCT USED FOR UNKNOWN INDICATION
     Route: 062

REACTIONS (15)
  - Decreased appetite [Unknown]
  - Upper limb fracture [Unknown]
  - Product complaint [Unknown]
  - Hypokinesia [Unknown]
  - Drug ineffective [Unknown]
  - Limb injury [Unknown]
  - Malaise [Unknown]
  - Wrist fracture [Unknown]
  - Application site erosion [Recovered/Resolved]
  - Injury [Unknown]
  - Feeling hot [Unknown]
  - Spinal operation [Unknown]
  - Weight increased [Not Recovered/Not Resolved]
  - Wrong technique in product usage process [Unknown]
  - Withdrawal syndrome [Unknown]

NARRATIVE: CASE EVENT DATE: 2019
